FAERS Safety Report 8111341-9 (Version None)
Quarter: 2012Q1

REPORT INFORMATION
  Report Type: 
  Country: None (occurrence: None)
  Receive Date: 20120203
  Receipt Date: 20110908
  Transmission Date: 20120608
  Serious: No
  Sender: FDA-Public Use
  Company Number: US-GLAXOSMITHKLINE-A0944510A

PATIENT
  Sex: Male

DRUGS (3)
  1. LITHIUM CARBONATE [Suspect]
     Indication: BIPOLAR DISORDER
     Dosage: 250MG UNKNOWN
     Route: 065
  2. LAMICTAL [Suspect]
     Indication: BIPOLAR DISORDER
     Dosage: 500MG UNKNOWN
     Route: 048
  3. HALDOL [Suspect]
     Indication: BIPOLAR DISORDER
     Dosage: 30MG UNKNOWN
     Route: 065

REACTIONS (11)
  - VERTIGO [None]
  - BACK PAIN [None]
  - WITHDRAWAL SYNDROME [None]
  - COORDINATION ABNORMAL [None]
  - FATIGUE [None]
  - VISION BLURRED [None]
  - GAIT DISTURBANCE [None]
  - FALL [None]
  - DIZZINESS [None]
  - DIPLOPIA [None]
  - HEADACHE [None]
